FAERS Safety Report 6934343-4 (Version None)
Quarter: 2010Q3

REPORT INFORMATION
  Report Type: 
  Country: None (occurrence: None)
  Receive Date: 20100820
  Receipt Date: 20100816
  Transmission Date: 20110219
  Serious: Yes (Other)
  Sender: FDA-Public Use
  Company Number: A0876097A

PATIENT
  Age: 57 Year
  Sex: Male

DRUGS (5)
  1. ADVAIR DISKUS 100/50 [Suspect]
     Indication: ASTHMA
     Route: 055
     Dates: start: 20080101
  2. INHALERS [Concomitant]
  3. UNSPECIFIED MEDICATION [Concomitant]
     Indication: ASTHMA
  4. LIPITOR [Concomitant]
  5. ASPIRIN [Concomitant]

REACTIONS (2)
  - ANGINA PECTORIS [None]
  - THERAPY REGIMEN CHANGED [None]
